FAERS Safety Report 20320585 (Version 1)
Quarter: 2022Q1

REPORT INFORMATION
  Report Type: Spontaneous
  Country: US (occurrence: US)
  Receive Date: 20220111
  Receipt Date: 20220111
  Transmission Date: 20220424
  Serious: Yes (Life-Threatening, Hospitalization, Other)
  Sender: FDA-Public Use
  Company Number: US-Inventia-000526

PATIENT
  Age: 55 Year
  Sex: Male

DRUGS (4)
  1. METFORMIN HYDROCHLORIDE [Suspect]
     Active Substance: METFORMIN HYDROCHLORIDE
     Indication: Type 2 diabetes mellitus
  2. AMLODIPINE [Concomitant]
     Active Substance: AMLODIPINE BESYLATE
     Indication: Hypertension
  3. LOSARTAN [Concomitant]
     Active Substance: LOSARTAN
     Indication: Hypertension
  4. ATENOLOL [Concomitant]
     Active Substance: ATENOLOL
     Indication: Hypertension

REACTIONS (5)
  - Lactic acidosis [Unknown]
  - Acute kidney injury [Recovering/Resolving]
  - Shock [Unknown]
  - Hyperkalaemia [Unknown]
  - Hypotension [Unknown]
